FAERS Safety Report 6394021-X (Version None)
Quarter: 2009Q4

REPORT INFORMATION
  Report Type: 
  Country: None (occurrence: None)
  Receive Date: 20091008
  Receipt Date: 20090924
  Transmission Date: 20100525
  Serious: Yes (Hospitalization)
  Sender: FDA-Public Use
  Company Number: PHHY2009IL41180

PATIENT
  Age: 30 Year
  Sex: Female

DRUGS (2)
  1. EXJADE [Suspect]
     Indication: THALASSAEMIA BETA
     Dosage: 30 MG/KG DAILY
     Route: 048
     Dates: start: 20070301, end: 20080501
  2. EXJADE [Suspect]
     Dosage: 40 MG/KG DAILY
     Route: 048
     Dates: start: 20080501, end: 20090901

REACTIONS (3)
  - FANCONI SYNDROME [None]
  - HYPOCALCAEMIA [None]
  - RENAL TUBULAR ACIDOSIS [None]
